FAERS Safety Report 6050176-8 (Version None)
Quarter: 2009Q1

REPORT INFORMATION
  Report Type: 
  Country: None (occurrence: None)
  Receive Date: 20090121
  Receipt Date: 20090105
  Transmission Date: 20090719
  Serious: Yes (Death, Other)
  Sender: FDA-Public Use
  Company Number: TPH-00134

PATIENT
  Age: 52 Year
  Sex: Female

DRUGS (6)
  1. DINAGEST (DIENOGEST) [Suspect]
     Indication: DRUG USE FOR UNKNOWN INDICATION
     Dosage: ORAL
     Route: 048
  2. MERCAZOLE (THIAMAZOLE) [Suspect]
  3. CARVEDILOL [Concomitant]
  4. AMLODIPINE BESYLATE [Concomitant]
  5. NORLUTEN (NORETHISTERONE) [Concomitant]
  6. TRIQUILAR 21 [Suspect]
     Indication: DRUG USE FOR UNKNOWN INDICATION
     Dosage: ORAL
     Route: 048

REACTIONS (7)
  - CEREBRAL INFARCTION [None]
  - CORONARY ARTERY EMBOLISM [None]
  - EMBOLIC STROKE [None]
  - HEMIPLEGIA [None]
  - HYPERTONIA [None]
  - PULMONARY EMBOLISM [None]
  - VENTRICULAR FIBRILLATION [None]
